FAERS Safety Report 13554828 (Version 1)
Quarter: 2017Q2

REPORT INFORMATION
  Report Type: Spontaneous
  Country: US (occurrence: US)
  Receive Date: 20170516
  Receipt Date: 20170516
  Transmission Date: 20170830
  Serious: Yes (Hospitalization)
  Sender: FDA-Public Use
  Company Number: None

PATIENT
  Age: 68 Year
  Sex: Male
  Weight: 80.2 kg

DRUGS (1)
  1. SAXAGLIPTIN [Suspect]
     Active Substance: SAXAGLIPTIN
     Indication: CARDIAC FAILURE CONGESTIVE
     Route: 048
     Dates: start: 20161011, end: 20161027

REACTIONS (6)
  - Nausea [None]
  - Orthopnoea [None]
  - Dyspnoea [None]
  - Refusal of treatment by patient [None]
  - Cardiac failure acute [None]
  - Vomiting [None]

NARRATIVE: CASE EVENT DATE: 20161027
